FAERS Safety Report 5727775-3 (Version None)
Quarter: 2008Q2

REPORT INFORMATION
  Report Type: 
  Country: None (occurrence: None)
  Receive Date: 20080505
  Receipt Date: 20080423
  Transmission Date: 20081010
  Serious: Yes (Death)
  Sender: FDA-Public Use
  Company Number: US-PFIZER INC-2008036441

PATIENT
  Sex: Male

DRUGS (6)
  1. SUTENT [Suspect]
     Route: 048
     Dates: start: 20080401, end: 20080401
  2. HYZAAR [Concomitant]
  3. ALLOPURINOL [Concomitant]
  4. OXYCODONE HYDROCHLORIDE W/PARACETAMOL [Concomitant]
  5. OXYCODONE HCL [Concomitant]
  6. METOPROLOL TARTRATE [Concomitant]

REACTIONS (1)
  - DEATH [None]
